FAERS Safety Report 12864107 (Version 1)
Quarter: 2016Q4

REPORT INFORMATION
  Report Type: Spontaneous
  Country: US (occurrence: US)
  Receive Date: 20161019
  Receipt Date: 20161019
  Transmission Date: 20170207
  Serious: Yes (Other)
  Sender: FDA-Public Use
  Company Number: US-AMGEN-USASP2016141759

PATIENT
  Age: 82 Year
  Sex: Male

DRUGS (2)
  1. NEUPOGEN [Suspect]
     Active Substance: FILGRASTIM
     Indication: PRODUCT USED FOR UNKNOWN INDICATION
     Dosage: UNK
     Route: 065
  2. NEULASTA [Suspect]
     Active Substance: PEGFILGRASTIM
     Indication: PRODUCT USED FOR UNKNOWN INDICATION
     Dosage: UNK, QMO
     Route: 065
     Dates: start: 201607

REACTIONS (8)
  - Musculoskeletal pain [Unknown]
  - Joint lock [Unknown]
  - Sleep disorder due to general medical condition, insomnia type [Unknown]
  - Dry skin [Unknown]
  - Myelodysplastic syndrome [Not Recovered/Not Resolved]
  - Pain in extremity [Unknown]
  - Corrective lens user [Unknown]
  - Arthralgia [Unknown]

NARRATIVE: CASE EVENT DATE: 2016
